FAERS Safety Report 20156266 (Version 2)
Quarter: 2022Q1

REPORT INFORMATION
  Report Type: Report from Study
  Country: TH (occurrence: None)
  Receive Date: 20211207
  Receipt Date: 20220121
  Transmission Date: 20220424
  Serious: Yes (Death, Other)
  Sender: FDA-Public Use
  Company Number: 2021A853097

PATIENT
  Age: 23907 Day
  Sex: Male

DRUGS (4)
  1. TAGRISSO [Suspect]
     Active Substance: OSIMERTINIB
     Indication: Non-small cell lung cancer metastatic
     Route: 048
     Dates: start: 20210714, end: 20211130
  2. ANTI-COUGH DRUG [Concomitant]
  3. VITAMINS [Concomitant]
     Active Substance: VITAMINS
  4. DRUG FOR INSOMNIA [Concomitant]

REACTIONS (4)
  - Condition aggravated [Fatal]
  - Neoplasm progression [Unknown]
  - Drug resistance [Unknown]
  - Drug ineffective [Unknown]

NARRATIVE: CASE EVENT DATE: 20211130
